FAERS Safety Report 6098322-4 (Version None)
Quarter: 2009Q1

REPORT INFORMATION
  Report Type: 
  Country: None (occurrence: None)
  Receive Date: 20090302
  Receipt Date: 20090218
  Transmission Date: 20090719
  Serious: Yes (Other)
  Sender: FDA-Public Use
  Company Number: US-PFIZER INC-2008088787

PATIENT
  Sex: Female
  Weight: 54 kg

DRUGS (2)
  1. NICOTROL [Suspect]
     Dates: start: 20080912
  2. CHANTIX [Suspect]

REACTIONS (10)
  - CHRONIC OBSTRUCTIVE PULMONARY DISEASE [None]
  - COUGH [None]
  - DRUG INEFFECTIVE [None]
  - EXPIRED DRUG ADMINISTERED [None]
  - MEDICATION ERROR [None]
  - NIGHT SWEATS [None]
  - RHINITIS [None]
  - SINUS CONGESTION [None]
  - TOBACCO ABUSE [None]
  - WEIGHT DECREASED [None]
